FAERS Safety Report 8366630-X (Version None)
Quarter: 2012Q2

REPORT INFORMATION
  Report Type: 
  Country: None (occurrence: None)
  Receive Date: 20120517
  Receipt Date: 20120511
  Transmission Date: 20120825
  Serious: Yes (Hospitalization, Other)
  Sender: FDA-Public Use
  Company Number: US-BAYER-2012-047379

PATIENT
  Age: 39 Year
  Sex: Female
  Weight: 54.422 kg

DRUGS (11)
  1. YASMIN [Suspect]
  2. PROTONIX [Concomitant]
     Indication: DYSPEPSIA
  3. NSAID'S [Concomitant]
     Indication: BACK PAIN
     Dosage: UNK
     Dates: start: 20030726
  4. XANAX [Concomitant]
  5. HYDROCODONE BITARTRATE [Concomitant]
  6. VIOXX [Concomitant]
  7. MUSCLE RELAXANT [Concomitant]
     Indication: MUSCLE SPASMS
     Dosage: UNK
     Dates: start: 20030726
  8. CIPROFLOXACIN [Concomitant]
     Indication: URINARY TRACT INFECTION
     Dosage: UNK
     Dates: start: 20030731
  9. AMBIEN [Concomitant]
  10. OXYCODONE HCL [Concomitant]
  11. VICODIN [Concomitant]

REACTIONS (3)
  - VENA CAVA THROMBOSIS [None]
  - DEEP VEIN THROMBOSIS [None]
  - THROMBOPHLEBITIS [None]
